FAERS Safety Report 13690369 (Version 1)
Quarter: 2017Q2

REPORT INFORMATION
  Report Type: Spontaneous
  Country: US (occurrence: US)
  Receive Date: 20170624
  Receipt Date: 20170624
  Transmission Date: 20170830
  Serious: No
  Sender: FDA-Public Use
  Company Number: None

PATIENT
  Age: 58 Year
  Sex: Male
  Weight: 81.9 kg

DRUGS (1)
  1. ERBITUX [Suspect]
     Active Substance: CETUXIMAB
     Dates: end: 20160823

REACTIONS (4)
  - Tooth abscess [None]
  - Nausea [None]
  - Weight increased [None]
  - Osteonecrosis of jaw [None]

NARRATIVE: CASE EVENT DATE: 20170515
